FAERS Safety Report 18913271 (Version 3)
Quarter: 2023Q4

REPORT INFORMATION
  Report Type: Other
  Country: JP (occurrence: JP)
  Receive Date: 20210219
  Receipt Date: 20231124
  Transmission Date: 20240110
  Serious: Yes (Other)
  Sender: FDA-Public Use
  Company Number: JP-CHUGAI-A2020055940ROCHE

PATIENT
  Age: 83 Year
  Sex: Female
  Weight: 59 kg

DRUGS (10)
  1. TECENTRIQ [Suspect]
     Active Substance: ATEZOLIZUMAB
     Indication: Hepatocellular carcinoma
     Route: 041
     Dates: start: 20201209, end: 202012
  2. AVASTIN [Suspect]
     Active Substance: BEVACIZUMAB
     Indication: Hepatocellular carcinoma
     Dosage: .
     Route: 041
     Dates: start: 20201209, end: 20201209
  3. LUNESTA [Concomitant]
     Active Substance: ESZOPICLONE
     Dosage: 1 MILLIGRAM
  4. AMLODIPINE BESYLATE\IRBESARTAN [Concomitant]
     Active Substance: AMLODIPINE BESYLATE\IRBESARTAN
     Dosage: 1T
  5. AVAPRO [Concomitant]
     Active Substance: IRBESARTAN
     Dosage: 100 MILLIGRAM
  6. LASIX [Concomitant]
     Active Substance: FUROSEMIDE
     Dosage: 20 MILLIGRAM
  7. LEVOTHYROXINE SODIUM [Concomitant]
     Active Substance: LEVOTHYROXINE SODIUM
     Dosage: 50 MICROGRAM
  8. VONOPRAZAN FUMARATE [Concomitant]
     Active Substance: VONOPRAZAN FUMARATE
     Dosage: 10 MILLIGRAM
  9. KETOPROFEN [Concomitant]
     Active Substance: KETOPROFEN
     Dosage: 40MG/DAY
  10. ADALAT [Concomitant]
     Active Substance: NIFEDIPINE
     Dosage: 20 MILLIGRAM

REACTIONS (4)
  - Thrombocytopenia [Recovered/Resolved]
  - Bone marrow failure [Unknown]
  - Blood glucose increased [Not Recovered/Not Resolved]
  - Protein urine [Not Recovered/Not Resolved]

NARRATIVE: CASE EVENT DATE: 20201213
